FAERS Safety Report 18571712 (Version 10)
Quarter: 2021Q4

REPORT INFORMATION
  Report Type: Report from Study
  Country: BR (occurrence: BR)
  Receive Date: 20201202
  Receipt Date: 20211007
  Transmission Date: 20220303
  Serious: Yes (Death, Hospitalization, Disabling, Other)
  Sender: FDA-Public Use
  Company Number: BR-TAKEDA-BR202027981

PATIENT
  Age: 13 Year
  Sex: Male
  Weight: 28 kg

DRUGS (4)
  1. IDURSULFASE [Suspect]
     Active Substance: IDURSULFASE
     Indication: Mucopolysaccharidosis II
     Dosage: 2 DOSAGE FORM
     Route: 065
  2. IDURSULFASE [Suspect]
     Active Substance: IDURSULFASE
     Dosage: 2 DOSAGE FORM
     Route: 065
     Dates: start: 202008
  3. IDURSULFASE [Suspect]
     Active Substance: IDURSULFASE
     Dosage: 2 DOSAGE FORM
     Route: 042
  4. IDURSULFASE [Suspect]
     Active Substance: IDURSULFASE
     Dosage: UNK
     Route: 065

REACTIONS (20)
  - Choking [Fatal]
  - Accident [Not Recovered/Not Resolved]
  - Fall [Not Recovered/Not Resolved]
  - Lower limb fracture [Unknown]
  - Head injury [Unknown]
  - Limb injury [Unknown]
  - Guillain-Barre syndrome [Not Recovered/Not Resolved]
  - Movement disorder [Not Recovered/Not Resolved]
  - Tooth disorder [Unknown]
  - Wheelchair user [Unknown]
  - Illness [Unknown]
  - Gait inability [Unknown]
  - Gastrointestinal disorder [Unknown]
  - Scratch [Unknown]
  - Umbilical hernia [Unknown]
  - Pyrexia [Unknown]
  - Product availability issue [Unknown]
  - Product dose omission issue [Unknown]
  - Incorrect dose administered [Unknown]
  - Inappropriate schedule of product administration [Unknown]

NARRATIVE: CASE EVENT DATE: 20201021
